FAERS Safety Report 5166101-8 (Version None)
Quarter: 2006Q4

REPORT INFORMATION
  Report Type: 
  Country: None (occurrence: None)
  Receive Date: 20061129
  Receipt Date: 20061122
  Transmission Date: 20070319
  Serious: Yes (Death, Hospitalization, Other)
  Sender: FDA-Public Use
  Company Number: 163-21880-06090998

PATIENT
  Age: 81 Year
  Sex: Female

DRUGS (6)
  1. REVLIMID [Suspect]
     Indication: MYELODYSPLASTIC SYNDROME
     Dosage: SEE IMAGE
     Route: 048
     Dates: start: 20060605, end: 20060713
  2. REVLIMID [Suspect]
     Indication: MYELODYSPLASTIC SYNDROME
     Dosage: SEE IMAGE
     Route: 048
     Dates: start: 20060727, end: 20060801
  3. PEPCID [Concomitant]
  4. DIGOXIN [Concomitant]
  5. LORTAB [Concomitant]
  6. RESTORIL [Concomitant]

REACTIONS (6)
  - ACUTE LEUKAEMIA [None]
  - AGRANULOCYTOSIS [None]
  - CATHETER RELATED INFECTION [None]
  - MALIGNANT NEOPLASM PROGRESSION [None]
  - MYELODYSPLASTIC SYNDROME [None]
  - REFUSAL OF TREATMENT BY PATIENT [None]
